FAERS Safety Report 20963172 (Version 1)
Quarter: 2022Q2

REPORT INFORMATION
  Report Type: Spontaneous
  Country: JP (occurrence: JP)
  Receive Date: 20220615
  Receipt Date: 20220615
  Transmission Date: 20220721
  Serious: Yes (Death)
  Sender: FDA-Public Use
  Company Number: JP-Merck Healthcare KGaA-9328267

PATIENT
  Age: 72 Year
  Sex: Male
  Weight: 56 kg

DRUGS (3)
  1. ERBITUX [Suspect]
     Active Substance: CETUXIMAB
     Indication: Lip and/or oral cavity cancer
     Dosage: 568 MG, UNKNOWN
     Route: 041
     Dates: start: 20211108, end: 20211108
  2. ERBITUX [Suspect]
     Active Substance: CETUXIMAB
     Dosage: 350 MG, UNKNOWN
     Route: 041
     Dates: start: 20211117, end: 20211117
  3. PACLITAXEL [Suspect]
     Active Substance: PACLITAXEL
     Indication: Lip and/or oral cavity cancer
     Dosage: 113.6 MG, UNKNOWN
     Route: 041
     Dates: start: 20211108, end: 20211117

REACTIONS (1)
  - Pneumonitis [Fatal]
